FAERS Safety Report 8223040-3 (Version None)
Quarter: 2012Q1

REPORT INFORMATION
  Report Type: 
  Country: None (occurrence: None)
  Receive Date: 20120321
  Receipt Date: 20120308
  Transmission Date: 20120608
  Serious: Yes (Death, Hospitalization)
  Sender: FDA-Public Use
  Company Number: US-ASTRAZENECA-2012SE17709

PATIENT
  Age: 6 Year
  Sex: Female

DRUGS (11)
  1. THIOTEPA [Concomitant]
     Indication: ACUTE LYMPHOCYTIC LEUKAEMIA
  2. CORTICOSTEROIDS NOS [Concomitant]
     Indication: ACUTE LYMPHOCYTIC LEUKAEMIA
  3. METHYLPREDNISOLONE [Concomitant]
  4. IMMUNOGLOBULINS [Concomitant]
     Indication: ACUTE LYMPHOCYTIC LEUKAEMIA
  5. FOSCARNET [Suspect]
     Indication: CYTOMEGALOVIRUS VIRAEMIA
     Route: 042
  6. GANCICLOVIR [Concomitant]
     Route: 042
  7. RABBIT ANTI-HUMAN THYMOCYTE IMMUNOGLOBULIN [Concomitant]
     Indication: ACUTE LYMPHOCYTIC LEUKAEMIA
  8. GANCICLOVIR [Concomitant]
     Route: 042
  9. CYCLOPHOSPHAMIDE [Concomitant]
     Indication: ACUTE LYMPHOCYTIC LEUKAEMIA
  10. MONOCLONAL ANTIBODIES, GRANULOCYTE [Concomitant]
  11. CIDOFOVIR [Concomitant]

REACTIONS (6)
  - HYDROCEPHALUS [None]
  - RENAL ABSCESS [None]
  - PNEUMONIA [None]
  - FUNGAL SEPSIS [None]
  - ABSCESS FUNGAL [None]
  - ENCEPHALITIS CYTOMEGALOVIRUS [None]
